FAERS Safety Report 18454085 (Version 1)
Quarter: 2020Q4

REPORT INFORMATION
  Report Type: Report from Study
  Country: US (occurrence: US)
  Receive Date: 20201102
  Receipt Date: 20201102
  Transmission Date: 20210114
  Serious: Yes (Hospitalization, Other)
  Sender: FDA-Public Use
  Company Number: US-TAKEDA-2020TUS045050

PATIENT
  Age: 54 Year
  Sex: Male

DRUGS (13)
  1. TEDUGLUTIDE [Suspect]
     Active Substance: TEDUGLUTIDE
     Indication: SHORT-BOWEL SYNDROME
     Dosage: 5 MILLIGRAM, QD
     Route: 065
     Dates: start: 20181003
  2. TEDUGLUTIDE [Suspect]
     Active Substance: TEDUGLUTIDE
     Dosage: 5 MILLIGRAM, QD
     Route: 065
     Dates: start: 20060614, end: 20161208
  3. CYMBALTA [Concomitant]
     Active Substance: DULOXETINE HYDROCHLORIDE
     Indication: DEPRESSION
     Dosage: 60 MILLIGRAM, QD
     Route: 048
     Dates: start: 20200910
  4. TEDUGLUTIDE [Suspect]
     Active Substance: TEDUGLUTIDE
     Indication: SHORT-BOWEL SYNDROME
     Dosage: 5 MILLIGRAM, QD
     Route: 065
     Dates: start: 20181003
  5. TEDUGLUTIDE [Suspect]
     Active Substance: TEDUGLUTIDE
     Dosage: 5 MILLIGRAM, QD
     Route: 065
     Dates: start: 20060614, end: 20161208
  6. ELIQUIS [Concomitant]
     Active Substance: APIXABAN
     Indication: PRODUCT USED FOR UNKNOWN INDICATION
     Route: 065
  7. TEDUGLUTIDE [Suspect]
     Active Substance: TEDUGLUTIDE
     Indication: SHORT-BOWEL SYNDROME
     Dosage: 5 MILLIGRAM, QD
     Route: 065
     Dates: start: 20181003
  8. TEDUGLUTIDE [Suspect]
     Active Substance: TEDUGLUTIDE
     Dosage: 5 MILLIGRAM, QD
     Route: 065
     Dates: start: 20060614, end: 20161208
  9. ZINCATE [Concomitant]
     Indication: MINERAL DEFICIENCY
     Dosage: 220 MILLIGRAM, QD
     Route: 048
     Dates: start: 2015, end: 20200212
  10. ALPRAZOLAM. [Concomitant]
     Active Substance: ALPRAZOLAM
     Indication: ANXIETY
     Dosage: 0.5 MILLIGRAM
     Route: 048
     Dates: start: 20200910
  11. TEDUGLUTIDE [Suspect]
     Active Substance: TEDUGLUTIDE
     Indication: SHORT-BOWEL SYNDROME
     Dosage: 5 MILLIGRAM, QD
     Route: 065
     Dates: start: 20181003
  12. PANTOPRAZOLE [Concomitant]
     Active Substance: PANTOPRAZOLE
     Indication: GASTROOESOPHAGEAL REFLUX DISEASE
     Dosage: 40 MILLIGRAM, QD
     Route: 048
     Dates: start: 2015
  13. TEDUGLUTIDE [Suspect]
     Active Substance: TEDUGLUTIDE
     Dosage: 5 MILLIGRAM, QD
     Route: 065
     Dates: start: 20060614, end: 20161208

REACTIONS (9)
  - Stoma complication [Unknown]
  - Bacteraemia [Recovered/Resolved]
  - Insomnia [Unknown]
  - Back pain [Unknown]
  - Asthenia [Unknown]
  - Anxiety [Unknown]
  - Staphylococcus test positive [Recovered/Resolved]
  - Facial spasm [Unknown]
  - Constipation [Unknown]

NARRATIVE: CASE EVENT DATE: 20200525
